FAERS Safety Report 15839974 (Version 1)
Quarter: 2019Q1

REPORT INFORMATION
  Report Type: Report from Study
  Country: IT (occurrence: IT)
  Receive Date: 20190117
  Receipt Date: 20190117
  Transmission Date: 20190417
  Serious: Yes (Hospitalization)
  Sender: FDA-Public Use
  Company Number: IT-TEVA-2019-IT-999563

PATIENT
  Age: 73 Year
  Sex: Female

DRUGS (4)
  1. CALCIO LEVOFOLINATO TEVA [Suspect]
     Active Substance: LEVOLEUCOVORIN CALCIUM
     Route: 065
  2. FLUOROURACILE TEVA [Suspect]
     Active Substance: FLUOROURACIL
     Route: 065
  3. VECTIBIX [Suspect]
     Active Substance: PANITUMUMAB
     Route: 065
  4. IRINOTECAN HIKMA [Suspect]
     Active Substance: IRINOTECAN
     Route: 065

REACTIONS (10)
  - Asthenia [Unknown]
  - Insomnia [Unknown]
  - Paraesthesia [Unknown]
  - Acne [Unknown]
  - Gait disturbance [Unknown]
  - Rash [Unknown]
  - Nausea [Unknown]
  - Foot deformity [Unknown]
  - Pyrexia [Unknown]
  - Diarrhoea [Unknown]

NARRATIVE: CASE EVENT DATE: 20180401
